FAERS Safety Report 25170180 (Version 2)
Quarter: 2025Q3

REPORT INFORMATION
  Report Type: Report from Study
  Country: US (occurrence: US)
  Receive Date: 20250407
  Receipt Date: 20250808
  Transmission Date: 20251020
  Serious: Yes (Disabling)
  Sender: ABBVIE
  Company Number: US-ABBVIE-6209000

PATIENT
  Age: 60 Year
  Sex: Female

DRUGS (1)
  1. HUMIRA [Suspect]
     Active Substance: ADALIMUMAB
     Indication: Psoriatic arthropathy
     Route: 058

REACTIONS (9)
  - Disability [Not Recovered/Not Resolved]
  - Spinal column injury [Unknown]
  - Pain [Unknown]
  - Fall [Unknown]
  - Psoriatic arthropathy [Unknown]
  - Joint range of motion decreased [Unknown]
  - Bladder disorder [Unknown]
  - Blood urine present [Unknown]
  - Nephrolithiasis [Unknown]
